FAERS Safety Report 8220797-2 (Version None)
Quarter: 2012Q1

REPORT INFORMATION
  Report Type: 
  Country: None (occurrence: None)
  Receive Date: 20120313
  Receipt Date: 20120228
  Transmission Date: 20120608
  Serious: Yes (Other)
  Sender: FDA-Public Use
  Company Number: DSA_55614_2012

PATIENT
  Sex: Female

DRUGS (1)
  1. BUPROPION HYDROCHLORIDE [Suspect]
     Indication: BIPOLAR I DISORDER
     Dosage: (150 MG, ORAL)
     Route: 048

REACTIONS (2)
  - JOINT EFFUSION [None]
  - MONARTHRITIS [None]
